FAERS Safety Report 15302980 (Version 3)
Quarter: 2018Q3

REPORT INFORMATION
  Report Type: Report from Study
  Country: AU (occurrence: AU)
  Receive Date: 20180821
  Receipt Date: 20180927
  Transmission Date: 20181010
  Serious: Yes (Other)
  Sender: FDA-Public Use
  Company Number: AU-MYLANLABS-2018M1062652

PATIENT
  Age: 34 Year
  Sex: Female

DRUGS (3)
  1. CLOZARIL [Suspect]
     Active Substance: CLOZAPINE
     Dosage: 200 MG, UNK
     Route: 048
     Dates: start: 20140312
  2. EPILIM [Suspect]
     Active Substance: VALPROATE SODIUM
     Indication: PRODUCT USED FOR UNKNOWN INDICATION
     Dosage: 1000 MG, BID
  3. CLOZARIL [Suspect]
     Active Substance: CLOZAPINE
     Indication: SCHIZOPHRENIA
     Dosage: UNK
     Dates: start: 2013

REACTIONS (11)
  - Troponin increased [Recovered/Resolved]
  - Anticonvulsant drug level decreased [Not Recovered/Not Resolved]
  - C-reactive protein increased [Unknown]
  - Anion gap increased [Unknown]
  - Blood creatine decreased [Not Recovered/Not Resolved]
  - Aspartate aminotransferase increased [Recovered/Resolved]
  - Metabolic syndrome [Unknown]
  - Blood lactate dehydrogenase increased [Recovered/Resolved]
  - Antipsychotic drug level decreased [Unknown]
  - Blood bicarbonate decreased [Not Recovered/Not Resolved]
  - Blood uric acid increased [Recovering/Resolving]

NARRATIVE: CASE EVENT DATE: 20160524
